FAERS Safety Report 25267195 (Version 1)
Quarter: 2025Q2

REPORT INFORMATION
  Report Type: Report from Study
  Country: US (occurrence: US)
  Receive Date: 20250505
  Receipt Date: 20250505
  Transmission Date: 20250716
  Serious: Yes (Hospitalization, Other)
  Sender: ALEXION PHARMACEUTICALS
  Company Number: US-ASTRAZENECA-202504USA026923US

PATIENT

DRUGS (1)
  1. BENRALIZUMAB [Suspect]
     Active Substance: BENRALIZUMAB
     Indication: Asthma
     Dosage: 30 MILLIGRAM, Q8W

REACTIONS (8)
  - Influenza [Unknown]
  - Pneumonia [Unknown]
  - Atrial fibrillation [Unknown]
  - Hallucination [Unknown]
  - Coronary artery thrombosis [Unknown]
  - Anal incontinence [Unknown]
  - Cough [Unknown]
  - Dyspnoea [Unknown]
